FAERS Safety Report 13538756 (Version 1)
Quarter: 2017Q2

REPORT INFORMATION
  Report Type: Spontaneous
  Country: NO (occurrence: NO)
  Receive Date: 20170512
  Receipt Date: 20170512
  Transmission Date: 20170830
  Serious: Yes (Hospitalization)
  Sender: FDA-Public Use
  Company Number: NO-ELI_LILLY_AND_COMPANY-NO201705001734

PATIENT
  Age: 53 Year
  Sex: Female

DRUGS (3)
  1. FLUANXOL                           /00109702/ [Suspect]
     Active Substance: FLUPENTIXOL
     Indication: SCHIZOPHRENIA
     Dosage: 20 MG, 2/M
     Route: 030
     Dates: start: 20170328, end: 20170408
  2. TRUXAL                             /00012101/ [Concomitant]
     Active Substance: CHLORPROTHIXENE
     Indication: PRODUCT USED FOR UNKNOWN INDICATION
     Dosage: 15 MG, PRN
     Route: 048
  3. ZYPADHERA [Suspect]
     Active Substance: OLANZAPINE PAMOATE
     Indication: SCHIZOPHRENIA
     Dosage: 405 MG, 2/M
     Route: 030

REACTIONS (4)
  - Dehydration [Unknown]
  - Hypotension [Recovering/Resolving]
  - Sinus bradycardia [Recovering/Resolving]
  - Overdose [Not Recovered/Not Resolved]

NARRATIVE: CASE EVENT DATE: 20170408
